FAERS Safety Report 9909670 (Version 1)
Quarter: 2014Q1

REPORT INFORMATION
  Report Type: Spontaneous
  Country: US (occurrence: US)
  Receive Date: 20140219
  Receipt Date: 20140219
  Transmission Date: 20141002
  Serious: Yes (Disabling)
  Sender: FDA-Public Use
  Company Number: US-GE HEALTHCARE MEDICAL DIAGNOSTICS-OSCN-PR-0812S-0643

PATIENT
  Age: 67 Year
  Sex: Female

DRUGS (4)
  1. OMNISCAN [Suspect]
     Indication: PRODUCT USED FOR UNKNOWN INDICATION
     Route: 042
     Dates: start: 20020319, end: 20020319
  2. OMNISCAN [Suspect]
     Route: 042
     Dates: start: 20020429, end: 20020429
  3. OMNISCAN [Suspect]
     Route: 042
     Dates: start: 20020919, end: 20020919
  4. OMNISCAN [Suspect]
     Route: 042
     Dates: start: 20021016, end: 20021016

REACTIONS (1)
  - Nephrogenic systemic fibrosis [Not Recovered/Not Resolved]
